FAERS Safety Report 18862377 (Version 1)
Quarter: 2021Q1

REPORT INFORMATION
  Report Type: Other
  Country: IR (occurrence: IR)
  Receive Date: 20210208
  Receipt Date: 20210208
  Transmission Date: 20210420
  Serious: Yes (Other)
  Sender: FDA-Public Use
  Company Number: IR-ROCHE-2762447

PATIENT

DRUGS (19)
  1. CYCLOPHOSPHAMIDE. [Suspect]
     Active Substance: CYCLOPHOSPHAMIDE
     Indication: NEOPLASM MALIGNANT
     Route: 065
  2. AMPHOTERICIN B. [Suspect]
     Active Substance: AMPHOTERICIN B
     Indication: NEOPLASM MALIGNANT
     Route: 065
  3. VP?16 [Suspect]
     Active Substance: ETOPOSIDE
     Indication: NEOPLASM MALIGNANT
     Route: 065
  4. CYTARABINE. [Suspect]
     Active Substance: CYTARABINE
     Indication: NEOPLASM MALIGNANT
     Route: 065
  5. RITUXIMAB. [Suspect]
     Active Substance: RITUXIMAB
     Indication: NEOPLASM MALIGNANT
     Route: 065
  6. CARBOPLATIN. [Suspect]
     Active Substance: CARBOPLATIN
     Indication: NEOPLASM MALIGNANT
     Route: 065
  7. CISPLATIN. [Suspect]
     Active Substance: CISPLATIN
     Indication: NEOPLASM MALIGNANT
     Route: 065
  8. DOXORUBICIN [Suspect]
     Active Substance: DOXORUBICIN
     Indication: NEOPLASM MALIGNANT
     Route: 065
  9. CEFTRIAXONE. [Suspect]
     Active Substance: CEFTRIAXONE
     Indication: NEOPLASM MALIGNANT
     Route: 065
  10. METRONIDAZOLE. [Suspect]
     Active Substance: METRONIDAZOLE
     Indication: NEOPLASM MALIGNANT
     Route: 065
  11. VINBLASTINE [Suspect]
     Active Substance: VINBLASTINE
     Indication: NEOPLASM MALIGNANT
     Route: 065
  12. METHOTREXATE. [Suspect]
     Active Substance: METHOTREXATE
     Indication: NEOPLASM MALIGNANT
     Route: 065
  13. VORICONAZOLE. [Suspect]
     Active Substance: VORICONAZOLE
     Indication: NEOPLASM MALIGNANT
     Route: 065
  14. VANCOMYCIN [Suspect]
     Active Substance: VANCOMYCIN
     Indication: NEOPLASM MALIGNANT
     Route: 065
  15. STREPTOKINASE [Suspect]
     Active Substance: STREPTOKINASE
     Indication: NEOPLASM MALIGNANT
     Route: 065
  16. VINCRISTINE [Suspect]
     Active Substance: VINCRISTINE
     Indication: NEOPLASM MALIGNANT
     Route: 065
  17. L?ASPARAGINASE [Suspect]
     Active Substance: ASPARAGINASE
     Indication: NEOPLASM MALIGNANT
     Route: 065
  18. IFOSFAMIDE. [Suspect]
     Active Substance: IFOSFAMIDE
     Indication: NEOPLASM MALIGNANT
     Route: 065
  19. CLOFARABINE. [Suspect]
     Active Substance: CLOFARABINE
     Indication: NEOPLASM MALIGNANT
     Route: 065

REACTIONS (30)
  - Dermatitis bullous [Unknown]
  - Apnoea [Unknown]
  - Anaphylactic reaction [Unknown]
  - Seizure [Unknown]
  - Cough [Unknown]
  - Pruritus [Unknown]
  - Nausea [Unknown]
  - Eye oedema [Unknown]
  - Muscle spasms [Unknown]
  - Oropharyngeal pain [Unknown]
  - Pyrexia [Unknown]
  - Chills [Unknown]
  - Influenza like illness [Unknown]
  - Photophobia [Unknown]
  - Vomiting [Unknown]
  - Superior vena cava syndrome [Unknown]
  - Tachypnoea [Unknown]
  - Malaise [Unknown]
  - Oedema peripheral [Unknown]
  - Diarrhoea [Unknown]
  - Urticaria [Unknown]
  - Face oedema [Unknown]
  - Abdominal pain [Unknown]
  - Tachycardia [Unknown]
  - Hypertension [Unknown]
  - Vision blurred [Unknown]
  - Headache [Unknown]
  - Erythema [Unknown]
  - Rash [Unknown]
  - Dyspnoea [Unknown]
